FAERS Safety Report 8901238 (Version 2)
Quarter: 2012Q4

REPORT INFORMATION
  Report Type: 
  Country: US (occurrence: US)
  Receive Date: 20121109
  Receipt Date: 20121210
  Transmission Date: 20130627
  Serious: No
  Sender: FDA-Public Use
  Company Number: US-PFIZER INC-2012276537

PATIENT
  Age: 94 Year

DRUGS (7)
  1. TRIMETHOPRIM [Suspect]
     Dosage: UNK
  2. E-MYCIN [Suspect]
     Dosage: UNK
  3. ADALAT [Suspect]
     Dosage: UNK
  4. ATIVAN [Suspect]
     Dosage: UNK
  5. CATAPRES [Suspect]
     Dosage: UNK
  6. CLARITIN [Suspect]
     Dosage: UNK
  7. TETANUS TOXOID [Suspect]
     Dosage: UNK

REACTIONS (1)
  - Drug hypersensitivity [Unknown]
